FAERS Safety Report 10031235 (Version 1)
Quarter: 2014Q1

REPORT INFORMATION
  Report Type: Spontaneous
  Country: US (occurrence: US)
  Receive Date: 20140324
  Receipt Date: 20140324
  Transmission Date: 20141002
  Serious: Yes (Hospitalization)
  Sender: FDA-Public Use
  Company Number: US-ROCHE-1363806

PATIENT
  Sex: Female

DRUGS (3)
  1. AVASTIN [Suspect]
     Indication: NEUROENDOCRINE CARCINOMA
     Route: 065
  2. XELODA [Suspect]
     Indication: NEUROENDOCRINE CARCINOMA
     Dosage: FOR 2 WEEKS
     Route: 065
  3. TEMODAR [Concomitant]

REACTIONS (11)
  - Hyponatraemia [Unknown]
  - Speech disorder [Unknown]
  - Nausea [Unknown]
  - Weight decreased [Unknown]
  - Vomiting [Unknown]
  - Malaise [Unknown]
  - Thrombocytopenia [Unknown]
  - Neutropenia [Unknown]
  - Blood chromogranin A increased [Unknown]
  - Convulsion [Unknown]
  - Mental status changes [Unknown]
